FAERS Safety Report 9674681 (Version 2)
Quarter: 2013Q4

REPORT INFORMATION
  Report Type: Spontaneous
  Country: US (occurrence: US)
  Receive Date: 20131107
  Receipt Date: 20131118
  Transmission Date: 20140711
  Serious: Yes (Other)
  Sender: FDA-Public Use
  Company Number: US-GLENMARK GENERICS INC.-2013GMK007388

PATIENT
  Sex: Female

DRUGS (3)
  1. VERAPAMIL [Suspect]
     Indication: HYPERTENSION
     Dosage: UNK
     Route: 048
     Dates: start: 201309
  2. HYDRALAZINE HCL [Suspect]
     Indication: HYPERTENSION
     Dosage: UNK
  3. CLONIDINE [Suspect]
     Indication: HYPERTENSION
     Dosage: UNK

REACTIONS (3)
  - Blood pressure increased [Recovered/Resolved]
  - Dizziness [Unknown]
  - Drug ineffective [Unknown]
